FAERS Safety Report 19351873 (Version 2)
Quarter: 2021Q2

REPORT INFORMATION
  Report Type: Report from Study
  Country: MX (occurrence: MX)
  Receive Date: 20210601
  Receipt Date: 20210617
  Transmission Date: 20210717
  Serious: Yes (Other)
  Sender: FDA-Public Use
  Company Number: NVSC2021MX118382

PATIENT
  Sex: Female
  Weight: 65 kg

DRUGS (5)
  1. LASIX [Concomitant]
     Active Substance: FUROSEMIDE
     Indication: DIURETIC THERAPY
     Dosage: 1/2 IN THE MORNING, STARTED 4 MONTHS AGO
     Route: 048
  2. CIRUELAX [Concomitant]
     Indication: CONSTIPATION
  3. TENORETIC [Concomitant]
     Active Substance: ATENOLOL\CHLORTHALIDONE
     Indication: HYPERTENSION
     Dosage: 1 DF, IN THE MORNING, STARTED 4 MONTHS AGO
     Route: 048
  4. CIRUELAX [Concomitant]
     Indication: COLITIS
     Dosage: 1 DF, QD, STARTED A LONG TIME AGO
     Route: 048
  5. DIOVAN [Suspect]
     Active Substance: VALSARTAN
     Indication: HYPERTENSION
     Dosage: 1 DF, Q12H, STARTED 4 MONTHS AGO
     Route: 048

REACTIONS (4)
  - Anxiety [Not Recovered/Not Resolved]
  - Osteopenia [Unknown]
  - Haemorrhoids [Recovering/Resolving]
  - Off label use [Unknown]
